FAERS Safety Report 8210969-5 (Version None)
Quarter: 2012Q1

REPORT INFORMATION
  Report Type: 
  Country: None (occurrence: None)
  Receive Date: 20120315
  Receipt Date: 20120305
  Transmission Date: 20120608
  Serious: Yes (Other)
  Sender: FDA-Public Use
  Company Number: US-JNJFOC-20120204277

PATIENT
  Sex: Female
  Weight: 113.4 kg

DRUGS (14)
  1. REMICADE [Suspect]
     Route: 042
     Dates: start: 20120125
  2. TYLENOL [Concomitant]
     Indication: PREMEDICATION
     Route: 048
     Dates: start: 20120125
  3. ATIVAN [Concomitant]
     Route: 065
  4. FENTANYL [Concomitant]
     Indication: PAIN
     Route: 062
  5. BENADRYL [Concomitant]
     Indication: PREMEDICATION
     Route: 048
     Dates: start: 20120125
  6. OXYCODONE AND ACETAMINOPHEN [Concomitant]
     Indication: PAIN
     Route: 048
  7. LUNESTA [Concomitant]
     Route: 048
  8. FLOVENT HFA [Concomitant]
     Indication: ASTHMA
     Route: 055
  9. ARAVA [Concomitant]
     Indication: RHEUMATOID ARTHRITIS
     Route: 065
  10. CYMBALTA [Concomitant]
     Route: 065
  11. REMICADE [Suspect]
     Indication: RHEUMATOID ARTHRITIS
     Dosage: 3MG/KG
     Route: 042
     Dates: start: 20110815
  12. LISINOPRIL [Concomitant]
     Indication: BLOOD PRESSURE
     Route: 065
  13. ALLEGRA [Concomitant]
     Indication: MULTIPLE ALLERGIES
     Route: 065
  14. ALBUTEROL [Concomitant]
     Route: 055

REACTIONS (11)
  - INFUSION RELATED REACTION [None]
  - MUSCULOSKELETAL STIFFNESS [None]
  - NAUSEA [None]
  - MYALGIA [None]
  - TENOSYNOVITIS [None]
  - SYNOVITIS [None]
  - MYOSITIS [None]
  - PRURITUS [None]
  - FATIGUE [None]
  - PALLOR [None]
  - DRUG EFFECT DECREASED [None]
